FAERS Safety Report 17372395 (Version 2)
Quarter: 2020Q1

REPORT INFORMATION
  Report Type: Spontaneous
  Country: JP (occurrence: JP)
  Receive Date: 20200205
  Receipt Date: 20200212
  Transmission Date: 20200409
  Serious: No
  Sender: FDA-Public Use
  Company Number: JP-GLAXOSMITHKLINE-JP2020017987

PATIENT
  Age: 67 Year
  Sex: Female

DRUGS (1)
  1. AMERGE [Suspect]
     Active Substance: NARATRIPTAN HYDROCHLORIDE
     Dosage: 2.5 MG, PRN
     Route: 048

REACTIONS (3)
  - Medication overuse headache [Recovered/Resolved]
  - Contraindicated product administered [Unknown]
  - Chest pain [Recovered/Resolved]
